FAERS Safety Report 25954776 (Version 1)
Quarter: 2025Q4

REPORT INFORMATION
  Report Type: Report from Study
  Country: IN (occurrence: IN)
  Receive Date: 20251024
  Receipt Date: 20251024
  Transmission Date: 20260118
  Serious: Yes (Other)
  Sender: NOVARTIS
  Company Number: IN-002147023-NVSC2025IN116849

PATIENT
  Sex: Female

DRUGS (3)
  1. RIBOCICLIB [Suspect]
     Active Substance: RIBOCICLIB
     Indication: Breast cancer
     Dosage: 200 MG, QD
     Route: 048
     Dates: start: 20250707
  2. RIBOCICLIB [Suspect]
     Active Substance: RIBOCICLIB
     Indication: Hormone receptor positive HER2 negative breast cancer
  3. LETROZOLE [Concomitant]
     Active Substance: LETROZOLE
     Indication: Product used for unknown indication
     Dosage: UNK
     Route: 065
     Dates: start: 202507

REACTIONS (3)
  - Neutropenia [Unknown]
  - Off label use [Unknown]
  - Eastern Cooperative Oncology Group performance status abnormal [Unknown]

NARRATIVE: CASE EVENT DATE: 20250801
